FAERS Safety Report 4457378-2 (Version None)
Quarter: 2004Q3

REPORT INFORMATION
  Report Type: 
  Country: None (occurrence: None)
  Receive Date: 20040922
  Receipt Date: 20040903
  Transmission Date: 20050211
  Serious: Yes (Death)
  Sender: FDA-Public Use
  Company Number: USA030639081

PATIENT
  Age: 61 Year
  Sex: Female

DRUGS (5)
  1. FORTEO [Suspect]
     Indication: OSTEOPOROSIS
     Dosage: 20 UG/1 DAY
     Dates: start: 20030609
  2. NEURONTIN [Concomitant]
  3. ALPRAZOLAM [Concomitant]
  4. AMITRIPTYLINE HCL [Concomitant]
  5. MORPHINE [Concomitant]

REACTIONS (12)
  - ACCIDENTAL OVERDOSE [None]
  - BLOOD CALCIUM INCREASED [None]
  - ERYTHEMA [None]
  - FALL [None]
  - HAEMORRHAGE [None]
  - INCOHERENT [None]
  - INJECTION SITE PAIN [None]
  - PAIN [None]
  - PHARMACEUTICAL PRODUCT COMPLAINT [None]
  - SPINAL FRACTURE [None]
  - TREATMENT NONCOMPLIANCE [None]
  - URTICARIA [None]
